FAERS Safety Report 13705605 (Version 1)
Quarter: 2017Q2

REPORT INFORMATION
  Report Type: Spontaneous
  Country: DE (occurrence: DE)
  Receive Date: 20170630
  Receipt Date: 20170630
  Transmission Date: 20170830
  Serious: Yes (Life-Threatening, Other)
  Sender: FDA-Public Use
  Company Number: DE-WEST-WARD PHARMACEUTICALS CORP.-DE-H14001-17-02193

PATIENT
  Age: 66 Year
  Sex: Female
  Weight: 99.9 kg

DRUGS (1)
  1. CEFUROXIM HIKMA [Suspect]
     Active Substance: CEFUROXIME
     Indication: HIP SURGERY
     Route: 042
     Dates: start: 20170608, end: 20170608

REACTIONS (1)
  - Anaphylactic shock [Recovered/Resolved]

NARRATIVE: CASE EVENT DATE: 20170608
